FAERS Safety Report 17162388 (Version 2)
Quarter: 2020Q1

REPORT INFORMATION
  Report Type: Spontaneous
  Country: US (occurrence: US)
  Receive Date: 20191217
  Receipt Date: 20200319
  Transmission Date: 20200409
  Serious: Yes (Other)
  Sender: FDA-Public Use
  Company Number: US-GILEAD-2019-0442855

PATIENT
  Age: 51 Year
  Sex: Male

DRUGS (32)
  1. BIKTARVY [Concomitant]
     Active Substance: BICTEGRAVIR SODIUM\EMTRICITABINE\TENOFOVIR ALAFENAMIDE FUMARATE
  2. IBUPROFEN. [Concomitant]
     Active Substance: IBUPROFEN
  3. SERTRALINE [Concomitant]
     Active Substance: SERTRALINE HYDROCHLORIDE
  4. KEFLEX [Concomitant]
     Active Substance: CEPHALEXIN
  5. HYDROCODONE BITARTRATE AND ACETAMINOPHEN [Concomitant]
     Active Substance: ACETAMINOPHEN\HYDROCODONE BITARTRATE
  6. MIDAZOLAM. [Concomitant]
     Active Substance: MIDAZOLAM
  7. BACTRIM DS [Concomitant]
     Active Substance: SULFAMETHOXAZOLE\TRIMETHOPRIM
  8. RANITIDINE. [Concomitant]
     Active Substance: RANITIDINE
  9. REVATIO [Concomitant]
     Active Substance: SILDENAFIL CITRATE
  10. VENLAFAXINE [Concomitant]
     Active Substance: VENLAFAXINE HYDROCHLORIDE
  11. OMEPRAZOLE. [Concomitant]
     Active Substance: OMEPRAZOLE
  12. ATRIPLA [Suspect]
     Active Substance: EFAVIRENZ\EMTRICITABINE\TENOFOVIR DISOPROXIL FUMARATE
     Indication: HIV INFECTION
     Dosage: 1 DOSAGE FORM, QD
     Route: 048
     Dates: start: 20120420, end: 20180802
  13. FLUOCINONIDE. [Concomitant]
     Active Substance: FLUOCINONIDE
  14. NAPROXEN. [Concomitant]
     Active Substance: NAPROXEN
  15. MULTIVITAMIN AND MINERAL [Concomitant]
  16. CHOLECALCIFEROL [Concomitant]
     Active Substance: CHOLECALCIFEROL
  17. MURO 128 [Concomitant]
     Active Substance: SODIUM CHLORIDE
  18. ADDERALL [Concomitant]
     Active Substance: AMPHETAMINE ASPARTATE\AMPHETAMINE SULFATE\DEXTROAMPHETAMINE SACCHARATE\DEXTROAMPHETAMINE SULFATE
  19. VIREAD [Suspect]
     Active Substance: TENOFOVIR DISOPROXIL FUMARATE
     Indication: HIV INFECTION
     Route: 065
  20. LOSARTAN. [Concomitant]
     Active Substance: LOSARTAN
  21. PANTOPRAZOLE [Concomitant]
     Active Substance: PANTOPRAZOLE
  22. DEXTROAMPHETAMINE [DEXAMFETAMINE] [Concomitant]
     Active Substance: DEXTROAMPHETAMINE
  23. FENTANYL. [Concomitant]
     Active Substance: FENTANYL
  24. LORAZEPAM. [Concomitant]
     Active Substance: LORAZEPAM
  25. GENVOYA [Concomitant]
     Active Substance: COBICISTAT\ELVITEGRAVIR\EMTRICITABINE\TENOFOVIR ALAFENAMIDE FUMARATE
     Indication: HIV INFECTION
     Dosage: 1 DOSAGE FORM, QD
     Route: 048
     Dates: start: 2018
  26. MIRTAZAPINE. [Concomitant]
     Active Substance: MIRTAZAPINE
  27. AMOXI-CLAV [Concomitant]
     Active Substance: AMOXICILLIN\CLAVULANATE POTASSIUM
  28. ALBUTEROL HFA [Concomitant]
     Active Substance: ALBUTEROL SULFATE
  29. GLUCOSAMINE JOINT COMPLEX [Concomitant]
  30. OMEGA 3 ACID ETHYL ESTERS [Concomitant]
     Active Substance: OMEGA-3-ACID ETHYL ESTERS
  31. CALCIUM [Concomitant]
     Active Substance: CALCIUM
  32. BUPROPION. [Concomitant]
     Active Substance: BUPROPION

REACTIONS (10)
  - Chronic kidney disease [Not Recovered/Not Resolved]
  - Anxiety [Unknown]
  - Osteopenia [Not Recovered/Not Resolved]
  - Emotional distress [Unknown]
  - Glomerular filtration rate decreased [Unknown]
  - Anhedonia [Unknown]
  - Pain [Unknown]
  - Bone loss [Not Recovered/Not Resolved]
  - Economic problem [Unknown]
  - Renal failure [Unknown]

NARRATIVE: CASE EVENT DATE: 20130107
